FAERS Safety Report 11517026 (Version 2)
Quarter: 2015Q3

REPORT INFORMATION
  Report Type: Report from Study
  Country: DE (occurrence: DE)
  Receive Date: 20150917
  Receipt Date: 20150924
  Transmission Date: 20151125
  Serious: Yes (Hospitalization)
  Sender: FDA-Public Use
  Company Number: DE-BAXALTA-2015BLT001631

PATIENT
  Age: 47 Year
  Weight: 120 kg

DRUGS (5)
  1. ADVATE [Suspect]
     Active Substance: ANTIHEMOPHILIC FACTOR, HUMAN RECOMBINANT
     Indication: FACTOR VIII DEFICIENCY
  2. OMEPRAZOL [Concomitant]
     Active Substance: OMEPRAZOLE
     Indication: PROPHYLAXIS AGAINST GASTROINTESTINAL ULCER
     Dosage: 40, UNK, 3X A DAY
     Route: 048
     Dates: start: 20120330, end: 20120404
  3. SULTAMICILLIN [Concomitant]
     Active Substance: SULTAMICILLIN
     Indication: CELLULITIS
     Dosage: 750 MG, 3X A DAY
     Route: 048
     Dates: start: 20120330, end: 20120410
  4. ADVATE [Suspect]
     Active Substance: ANTIHEMOPHILIC FACTOR, HUMAN RECOMBINANT
     Indication: HAEMORRHAGE PROPHYLAXIS
     Dosage: 2000 IU, EVERY 2 DY
     Route: 042
     Dates: start: 20110330
  5. IMBUN [Concomitant]
     Active Substance: IBUPROFEN
     Indication: CELLULITIS
     Dosage: 500 MG, 3X A DAY
     Route: 048
     Dates: start: 20120330, end: 20120404

REACTIONS (1)
  - Arthropathy [Recovered/Resolved with Sequelae]

NARRATIVE: CASE EVENT DATE: 20130422
